FAERS Safety Report 7772868-2 (Version None)
Quarter: 2011Q3

REPORT INFORMATION
  Report Type: 
  Country: None (occurrence: None)
  Receive Date: 20110922
  Receipt Date: 20110426
  Transmission Date: 20111222
  Serious: No
  Sender: FDA-Public Use
  Company Number: US-ASTRAZENECA-2011SE11838

PATIENT
  Age: 56 Year
  Sex: Female
  Weight: 41.7 kg

DRUGS (6)
  1. LEVOTHYROXINE SODIUM [Concomitant]
     Indication: HYPOTHYROIDISM
  2. MIRTAZAPINE [Concomitant]
  3. SEROQUEL [Suspect]
     Indication: BIPOLAR I DISORDER
     Route: 048
     Dates: start: 20100101
  4. METHADONE HCL [Concomitant]
     Indication: BACK PAIN
  5. CLONAZEPAM [Concomitant]
  6. OXYCODONE HCL [Concomitant]
     Indication: PAIN

REACTIONS (8)
  - DRY MOUTH [None]
  - PARAESTHESIA [None]
  - HEPATITIS C [None]
  - MUSCLE SPASMS [None]
  - HYPERSOMNIA [None]
  - CONFUSIONAL STATE [None]
  - ALOPECIA [None]
  - CONSTIPATION [None]
